FAERS Safety Report 6766106-7 (Version None)
Quarter: 2010Q2

REPORT INFORMATION
  Report Type: 
  Country: None (occurrence: None)
  Receive Date: 20100611
  Receipt Date: 20100603
  Transmission Date: 20101027
  Serious: Yes (Hospitalization)
  Sender: FDA-Public Use
  Company Number: PHHO2010NL00871

PATIENT
  Sex: Male
  Weight: 66 kg

DRUGS (2)
  1. CERTICAN [Suspect]
     Indication: NEPHROPATHY
     Dosage: 1.5 MG, DAILY
     Route: 048
     Dates: start: 20070101, end: 20070209
  2. PREDNISONE [Suspect]
     Indication: NEPHROPATHY
     Dosage: 10 MG, DAILY
     Route: 048
     Dates: start: 20050418, end: 20070209

REACTIONS (4)
  - DYSPNOEA [None]
  - INTERSTITIAL LUNG DISEASE [None]
  - LUNG CONSOLIDATION [None]
  - PYREXIA [None]
